FAERS Safety Report 5145662-9 (Version None)
Quarter: 2006Q4

REPORT INFORMATION
  Report Type: 
  Country: None (occurrence: None)
  Receive Date: 20061031
  Receipt Date: 20061018
  Transmission Date: 20070319
  Serious: Yes (Hospitalization, Other)
  Sender: FDA-Public Use
  Company Number: 2006BH014126

PATIENT
  Age: 58 Year
  Sex: Female

DRUGS (7)
  1. DEXAMETHASONE TAB [Suspect]
     Indication: MANTLE CELL LYMPHOMA STAGE IV
  2. DOXORUBICIN GENERIC [Suspect]
     Indication: MANTLE CELL LYMPHOMA STAGE IV
  3. CYCLOPHOSPHAMIDE [Suspect]
     Indication: MANTLE CELL LYMPHOMA STAGE IV
  4. VINCRISTINE SULFATE [Suspect]
     Indication: MANTLE CELL LYMPHOMA STAGE IV
  5. METHOTREXATE [Suspect]
     Indication: MANTLE CELL LYMPHOMA STAGE IV
  6. RITUXIMAB [Suspect]
     Indication: MANTLE CELL LYMPHOMA STAGE IV
  7. CYTARABINE [Suspect]
     Indication: MANTLE CELL LYMPHOMA STAGE IV

REACTIONS (8)
  - EMBOLISM VENOUS [None]
  - FEBRILE NEUTROPENIA [None]
  - HAEMATOCRIT DECREASED [None]
  - PLATELET COUNT DECREASED [None]
  - PNEUMONIA [None]
  - PULMONARY EMBOLISM [None]
  - TACHYCARDIA [None]
  - VENOUS THROMBOSIS LIMB [None]
